FAERS Safety Report 21124047 (Version 1)
Quarter: 2022Q3

REPORT INFORMATION
  Report Type: Spontaneous
  Country: JP (occurrence: JP)
  Receive Date: 20220725
  Receipt Date: 20220725
  Transmission Date: 20221027
  Serious: Yes (Death, Hospitalization, Other)
  Sender: FDA-Public Use
  Company Number: JP-MSD-M2022-29061

PATIENT
  Age: 84 Year
  Sex: Male

DRUGS (1)
  1. KEYTRUDA [Suspect]
     Active Substance: PEMBROLIZUMAB
     Indication: Oesophageal carcinoma
     Dosage: 200 MILLIGRAM, EVERY 4 WEEKS
     Route: 041
     Dates: start: 202204, end: 2022

REACTIONS (5)
  - Sepsis [Fatal]
  - Myelosuppression [Recovering/Resolving]
  - Pyrexia [Unknown]
  - Decreased appetite [Not Recovered/Not Resolved]
  - Off label use [Unknown]

NARRATIVE: CASE EVENT DATE: 20220101
